FAERS Safety Report 13770254 (Version 4)
Quarter: 2025Q3

REPORT INFORMATION
  Report Type: Report from Study
  Country: CA (occurrence: CA)
  Receive Date: 20170719
  Receipt Date: 20250929
  Transmission Date: 20251020
  Serious: Yes (Hospitalization, Other)
  Sender: TAKEDA
  Company Number: CA-TAKEDA-2017TUS014874

PATIENT
  Sex: Female

DRUGS (22)
  1. VEDOLIZUMAB [Suspect]
     Active Substance: VEDOLIZUMAB
     Indication: Crohn^s disease
  2. VEDOLIZUMAB [Suspect]
     Active Substance: VEDOLIZUMAB
     Dosage: 300 MILLIGRAM, Q4WEEKS
     Dates: start: 20160627
  3. VEDOLIZUMAB [Suspect]
     Active Substance: VEDOLIZUMAB
  4. VEDOLIZUMAB [Suspect]
     Active Substance: VEDOLIZUMAB
  5. VEDOLIZUMAB [Suspect]
     Active Substance: VEDOLIZUMAB
     Indication: Crohn^s disease
     Dosage: 108 MILLIGRAM, Q2WEEKS
     Dates: start: 20250714
  6. PROZAC [Concomitant]
     Active Substance: FLUOXETINE HYDROCHLORIDE
     Dosage: 80 MG, QD
  7. LANSOPRAZOLE [Concomitant]
     Active Substance: LANSOPRAZOLE
     Dosage: 30 MG, BID
  8. CELEBREX [Concomitant]
     Active Substance: CELECOXIB
     Dosage: 100 MG, BID
  9. ZOPICLONE [Concomitant]
     Active Substance: ZOPICLONE
     Dosage: 7.5 MG, UNK
  10. NABILONE [Concomitant]
     Active Substance: NABILONE
     Dosage: 0.5 MILLIGRAM, QD
  11. GABAPENTIN [Concomitant]
     Active Substance: GABAPENTIN
     Dosage: UNK UNK, TID
  12. MICRO K [Concomitant]
     Dosage: UNK UNK, BID
  13. GRAVOL [Concomitant]
     Active Substance: DIMENHYDRINATE
  14. HYDROMORPHONE [Concomitant]
     Active Substance: HYDROMORPHONE
  15. TRAZODONE [Concomitant]
     Active Substance: TRAZODONE HYDROCHLORIDE
  16. VITAMIN D3 [Concomitant]
     Active Substance: CHOLECALCIFEROL
  17. VITAMIN B12 [Concomitant]
     Active Substance: CYANOCOBALAMIN
  18. CALCIUM [Concomitant]
     Active Substance: CALCIUM
  19. FENTANYL [Concomitant]
     Active Substance: FENTANYL
  20. Omega [Concomitant]
  21. TYLENOL [Concomitant]
     Active Substance: ACETAMINOPHEN
  22. DILAUDID [Concomitant]
     Active Substance: HYDROMORPHONE HYDROCHLORIDE

REACTIONS (12)
  - Gastrointestinal obstruction [Not Recovered/Not Resolved]
  - Intestinal obstruction [Not Recovered/Not Resolved]
  - Small intestinal obstruction [Unknown]
  - Crohn^s disease [Unknown]
  - Respiratory failure [Unknown]
  - Shock [Unknown]
  - Septic cardiomyopathy [Unknown]
  - Abdominal adhesions [Unknown]
  - Pneumonia [Unknown]
  - Sepsis [Unknown]
  - Joint injury [Not Recovered/Not Resolved]
  - Stoma site haemorrhage [Unknown]

NARRATIVE: CASE EVENT DATE: 20170101
